FAERS Safety Report 21026819 (Version 1)
Quarter: 2022Q2

REPORT INFORMATION
  Report Type: Spontaneous
  Country: JP (occurrence: JP)
  Receive Date: 20220630
  Receipt Date: 20220630
  Transmission Date: 20220721
  Serious: Yes (Hospitalization)
  Sender: FDA-Public Use
  Company Number: JP-Long Grove-000009

PATIENT
  Age: 84 Year
  Sex: Male

DRUGS (2)
  1. TRIAMCINOLONE ACETONIDE [Suspect]
     Active Substance: TRIAMCINOLONE ACETONIDE
     Indication: Trigger finger
  2. LIDOCAINE [Concomitant]
     Active Substance: LIDOCAINE
     Indication: Trigger finger
     Dosage: 0.125ML 1% LIDOCAINE

REACTIONS (2)
  - Tenosynovitis [Recovered/Resolved]
  - Candida infection [Recovered/Resolved]
